FAERS Safety Report 5853703-6 (Version None)
Quarter: 2008Q3

REPORT INFORMATION
  Report Type: 
  Country: None (occurrence: None)
  Receive Date: 20080822
  Receipt Date: 20080815
  Transmission Date: 20090109
  Serious: Yes (Hospitalization, Other)
  Sender: FDA-Public Use
  Company Number: PHHY2008CA12251

PATIENT
  Sex: Male

DRUGS (4)
  1. CLOZARIL [Suspect]
     Indication: SCHIZOPHRENIA
     Dosage: 500 MG, UNK
     Route: 048
     Dates: start: 20080311, end: 20080618
  2. CLOZARIL [Suspect]
     Dosage: 500 MG, QHS
     Route: 048
  3. HALDOL LA [Concomitant]
     Dosage: 350 MG, Q2/DAY
     Route: 030
  4. OLANZAPINE [Concomitant]
     Dosage: 10 MG, QHS
     Route: 048

REACTIONS (2)
  - CONVULSION [None]
  - MULTIPLE DRUG OVERDOSE [None]
